FAERS Safety Report 8164258-8 (Version None)
Quarter: 2012Q1

REPORT INFORMATION
  Report Type: 
  Country: None (occurrence: None)
  Receive Date: 20120224
  Receipt Date: 20111027
  Transmission Date: 20120608
  Serious: No
  Sender: FDA-Public Use
  Company Number: US-ASTRAZENECA-2011SE65238

PATIENT
  Sex: Female

DRUGS (2)
  1. VIMOVO [Suspect]
     Indication: MYALGIA
     Dosage: 500 MG/20 MG, DAILY
     Route: 048
  2. VIMOVO [Suspect]
     Indication: ARTHRITIS
     Dosage: 500 MG/20 MG, DAILY
     Route: 048

REACTIONS (3)
  - INCORRECT DOSE ADMINISTERED [None]
  - OFF LABEL USE [None]
  - FEELING ABNORMAL [None]
